FAERS Safety Report 13267619 (Version 3)
Quarter: 2017Q1

REPORT INFORMATION
  Report Type: Spontaneous
  Country: US (occurrence: US)
  Receive Date: 20170224
  Receipt Date: 20170307
  Transmission Date: 20170428
  Serious: Yes (Other)
  Sender: FDA-Public Use
  Company Number: US-PFIZER INC-2017079491

PATIENT
  Age: 54 Year
  Sex: Male
  Weight: 158.73 kg

DRUGS (2)
  1. LYRICA [Suspect]
     Active Substance: PREGABALIN
     Indication: DIABETIC NEUROPATHY
     Dosage: UNK, 2X/DAY
     Route: 048
  2. LYRICA [Suspect]
     Active Substance: PREGABALIN
     Dosage: 50 MG, 1X/DAY
     Route: 048
     Dates: end: 201702

REACTIONS (17)
  - Tremor [Unknown]
  - Headache [Unknown]
  - Skin disorder [Unknown]
  - Gait disturbance [Unknown]
  - Anxiety [Unknown]
  - Oedema peripheral [Recovering/Resolving]
  - Blister infected [Unknown]
  - Anger [Unknown]
  - Pain in extremity [Unknown]
  - Blister rupture [Unknown]
  - Drug dependence [Unknown]
  - Nausea [Unknown]
  - Condition aggravated [Unknown]
  - Insomnia [Unknown]
  - Diarrhoea [Unknown]
  - Erythema [Unknown]
  - Hyperhidrosis [Unknown]

NARRATIVE: CASE EVENT DATE: 201609
